FAERS Safety Report 7716942-5 (Version None)
Quarter: 2011Q3

REPORT INFORMATION
  Report Type: 
  Country: None (occurrence: None)
  Receive Date: 20110829
  Receipt Date: 20110819
  Transmission Date: 20111222
  Serious: Yes (Other)
  Sender: FDA-Public Use
  Company Number: US-ASTRAZENECA-2010SE24235

PATIENT
  Age: 64 Year
  Sex: Female
  Weight: 97.5 kg

DRUGS (8)
  1. SEROQUEL [Suspect]
     Dosage: 200 MG 2 TABLETS AT NIGHT
     Route: 048
  2. SEROQUEL [Suspect]
     Route: 048
  3. SEROQUEL [Suspect]
     Route: 048
  4. SEROQUEL [Suspect]
     Dosage: 200 MG 2 TABLETS AT NIGHT
     Route: 048
  5. SEROQUEL [Suspect]
     Route: 048
  6. SEROQUEL [Suspect]
     Indication: SLEEP DISORDER
     Dosage: AT NIGHT
     Route: 048
     Dates: start: 20060101
  7. SEROQUEL [Suspect]
     Route: 048
  8. SEROQUEL [Suspect]
     Indication: DEPRESSION
     Dosage: AT NIGHT
     Route: 048
     Dates: start: 20060101

REACTIONS (4)
  - MUSCULOSKELETAL PAIN [None]
  - BACK PAIN [None]
  - NECK PAIN [None]
  - EYE PROSTHESIS USER [None]
